FAERS Safety Report 7005031-3 (Version None)
Quarter: 2010Q3

REPORT INFORMATION
  Report Type: 
  Country: None (occurrence: None)
  Receive Date: 20100920
  Receipt Date: 20100920
  Transmission Date: 20110219
  Serious: Yes (Life-Threatening, Hospitalization)
  Sender: FDA-Public Use
  Company Number: None

PATIENT
  Age: 38 Year
  Sex: Male

DRUGS (1)
  1. NAPROXEN [Suspect]

REACTIONS (6)
  - FLUSHING [None]
  - HYPOTENSION [None]
  - NAUSEA [None]
  - PRURITUS [None]
  - SEPSIS [None]
  - VOMITING [None]
